FAERS Safety Report 12801177 (Version 1)
Quarter: 2016Q4

REPORT INFORMATION
  Report Type: Spontaneous
  Country: TH (occurrence: TH)
  Receive Date: 20161003
  Receipt Date: 20161003
  Transmission Date: 20170207
  Serious: Yes (Life-Threatening, Other)
  Sender: FDA-Public Use
  Company Number: TH-SUN PHARMACEUTICAL INDUSTRIES LTD-2016R1-124356

PATIENT
  Age: 20 Year
  Sex: Male

DRUGS (3)
  1. CLOZAPINE. [Suspect]
     Active Substance: CLOZAPINE
     Indication: SCHIZOPHRENIA
     Dosage: TITRATED UPWARD TO A DOSE OF 450 MG OVER AN ELEVEN DAY PERIOD (1,500 MG TOTAL OVER FIRST NINE DAYS)
     Route: 065
  2. CLOZAPINE. [Suspect]
     Active Substance: CLOZAPINE
     Dosage: UNK
     Route: 065
  3. OLANZAPINE. [Concomitant]
     Active Substance: OLANZAPINE
     Indication: SCHIZOPHRENIA
     Dosage: 40 MG, DAILY
     Route: 065

REACTIONS (5)
  - Oropharyngeal pain [Unknown]
  - Pleuritic pain [Recovered/Resolved]
  - Nasal congestion [Unknown]
  - Headache [Unknown]
  - Myocarditis [Recovered/Resolved]
